FAERS Safety Report 8222236-4 (Version None)
Quarter: 2012Q1

REPORT INFORMATION
  Report Type: 
  Country: None (occurrence: None)
  Receive Date: 20120320
  Receipt Date: 20120315
  Transmission Date: 20120608
  Serious: Yes (Hospitalization)
  Sender: FDA-Public Use
  Company Number: US-GLAXOSMITHKLINE-A0932435A

PATIENT
  Age: 73 Year
  Sex: Female
  Weight: 77.3 kg

DRUGS (9)
  1. METOPROLOL SUCCINATE [Concomitant]
  2. AVANDIA [Suspect]
     Indication: DIABETES MELLITUS
     Dosage: 8MG PER DAY
     Route: 048
     Dates: start: 20000830, end: 20081219
  3. PROTONIX [Concomitant]
  4. ADVAIR DISKUS 100/50 [Concomitant]
  5. VYTORIN [Concomitant]
  6. METFORMIN HCL [Concomitant]
  7. DILTIAZEM HCL [Concomitant]
  8. GLYBURIDE [Concomitant]
  9. SKELAXIN [Concomitant]

REACTIONS (2)
  - CEREBROVASCULAR ACCIDENT [None]
  - HEMIANOPIA HOMONYMOUS [None]
